FAERS Safety Report 7836524-4 (Version None)
Quarter: 2011Q4

REPORT INFORMATION
  Report Type: 
  Country: None (occurrence: None)
  Receive Date: 20111024
  Receipt Date: 20111020
  Transmission Date: 20120403
  Serious: No
  Sender: FDA-Public Use
  Company Number: US-TEVA-306195USA

PATIENT
  Sex: Female
  Weight: 74.91 kg

DRUGS (3)
  1. PLAN B ONE-STEP [Suspect]
     Indication: POST COITAL CONTRACEPTION
     Dosage: 1.5 MILLIGRAM;
     Route: 048
     Dates: start: 20111011, end: 20111011
  2. CHORIONIC GONADOTROPIN [Concomitant]
     Indication: WEIGHT DECREASED
  3. PHENTERMINE [Concomitant]
     Indication: DECREASED APPETITE

REACTIONS (4)
  - DYSGEUSIA [None]
  - BREAST TENDERNESS [None]
  - NAUSEA [None]
  - PAROSMIA [None]
